FAERS Safety Report 19519791 (Version 1)
Quarter: 2021Q3

REPORT INFORMATION
  Report Type: Spontaneous
  Country: DE (occurrence: DE)
  Receive Date: 20210712
  Receipt Date: 20210712
  Transmission Date: 20211014
  Serious: Yes (Other)
  Sender: FDA-Public Use
  Company Number: DE-ROCHE-2866645

PATIENT
  Age: 33 Year
  Sex: Male

DRUGS (5)
  1. OCREVUS [Suspect]
     Active Substance: OCRELIZUMAB
     Dosage: SIXTH INFUSION
     Route: 042
     Dates: start: 202106
  2. OCREVUS [Suspect]
     Active Substance: OCRELIZUMAB
     Indication: MULTIPLE SCLEROSIS
     Route: 042
     Dates: start: 201806
  3. OCREVUS [Suspect]
     Active Substance: OCRELIZUMAB
     Dosage: THIRD INFUSION
     Route: 042
     Dates: start: 201901
  4. OCREVUS [Suspect]
     Active Substance: OCRELIZUMAB
     Dosage: FOURTH INFUSION
     Route: 042
     Dates: start: 201906
  5. OCREVUS [Suspect]
     Active Substance: OCRELIZUMAB
     Dosage: FIFTH INFUSION
     Route: 042
     Dates: start: 202012

REACTIONS (2)
  - Multiple sclerosis relapse [Recovered/Resolved]
  - Headache [Recovered/Resolved]

NARRATIVE: CASE EVENT DATE: 201806
